FAERS Safety Report 20814521 (Version 1)
Quarter: 2022Q2

REPORT INFORMATION
  Report Type: Report from Study
  Country: IT (occurrence: IT)
  Receive Date: 20220511
  Receipt Date: 20220511
  Transmission Date: 20220721
  Serious: Yes (Hospitalization)
  Sender: FDA-Public Use
  Company Number: None

PATIENT
  Age: 67 Year
  Sex: Female

DRUGS (4)
  1. GABAPENTIN [Suspect]
     Active Substance: GABAPENTIN
     Dosage: 3 G, TOTAL
     Route: 048
     Dates: start: 20220411, end: 20220411
  2. MIRTAZAPINE [Suspect]
     Active Substance: MIRTAZAPINE
     Dosage: 840 MG, TOTAL
     Route: 048
     Dates: start: 20220411, end: 20220411
  3. PAROXETINE [Suspect]
     Active Substance: PAROXETINE
     Dosage: 560 MG, TOTAL
     Route: 048
     Dates: start: 20220411, end: 20220411
  4. FLURAZEPAM HYDROCHLORIDE [Suspect]
     Active Substance: FLURAZEPAM HYDROCHLORIDE
     Dosage: 450 MG, TOTAL
     Route: 048
     Dates: start: 20220411, end: 20220411

REACTIONS (2)
  - Substance abuse [Unknown]
  - Loss of consciousness [Unknown]

NARRATIVE: CASE EVENT DATE: 20220411
